FAERS Safety Report 10024548 (Version 2)
Quarter: 2014Q1

REPORT INFORMATION
  Report Type: Spontaneous
  Country: BR (occurrence: BR)
  Receive Date: 20140320
  Receipt Date: 20140320
  Transmission Date: 20141002
  Serious: Yes (Other)
  Sender: FDA-Public Use
  Company Number: BR-HORIZON-VIM-0025-2014

PATIENT
  Age: 61 Year
  Sex: Female

DRUGS (6)
  1. ROSULIB [Suspect]
     Indication: BLOOD CHOLESTEROL INCREASED
     Dosage: UNKNOWN DAILY
     Route: 048
  2. VIMOVO [Suspect]
     Indication: FOOT FRACTURE
     Dosage: PATIENT TOOK ONLY 1 TABLET
     Route: 048
     Dates: start: 20131203, end: 20131203
  3. EUTHYROX [Concomitant]
     Indication: HYPOTHYROIDISM
     Dosage: UNKNOWN DAILY
     Route: 048
  4. GLIFAGE [Concomitant]
     Indication: DIABETES MELLITUS
     Dosage: UNKNOWN, DAILY
     Route: 048
  5. LOSARTAN [Concomitant]
     Indication: HYPERTENSION
     Dosage: UNKNOWN DAILY
     Route: 048
  6. DIAMICRON MR [Concomitant]
     Indication: DIABETES MELLITUS
     Dosage: UNKNOWN, DAILY
     Route: 048

REACTIONS (3)
  - Labyrinthitis [Recovered/Resolved]
  - Off label use [Recovered/Resolved]
  - Foot fracture [Recovered/Resolved]
